FAERS Safety Report 9336815 (Version 1)
Quarter: 2013Q2

REPORT INFORMATION
  Report Type: Spontaneous
  Country: GB (occurrence: GB)
  Receive Date: 20130607
  Receipt Date: 20130607
  Transmission Date: 20140414
  Serious: Yes (Other)
  Sender: FDA-Public Use
  Company Number: GB-009507513-1306GBR002516

PATIENT
  Age: 92 Year
  Sex: Female
  Weight: 70 kg

DRUGS (10)
  1. ALENDRONATE SODIUM [Suspect]
     Indication: OSTEOPOROSIS
     Dosage: 1 DF, 1/1 WEEKS
     Route: 048
     Dates: start: 2010
  2. ASPIRIN [Concomitant]
     Dosage: 75 MG, UNK
  3. CALCIUM (UNSPECIFIED) [Concomitant]
  4. CARBOCYSTEINE [Concomitant]
  5. FELODIPINE [Concomitant]
  6. FUROSEMIDE [Concomitant]
  7. GLICLAZIDE [Concomitant]
  8. LANSOPRAZOLE [Concomitant]
  9. RAMIPRIL [Concomitant]
  10. SIMVASTATIN [Concomitant]

REACTIONS (1)
  - Confusional state [Unknown]
